FAERS Safety Report 7235326-X (Version None)
Quarter: 2011Q1

REPORT INFORMATION
  Report Type: 
  Country: None (occurrence: None)
  Receive Date: 20110114
  Receipt Date: 20110114
  Transmission Date: 20110831
  Serious: Yes (Other)
  Sender: FDA-Public Use
  Company Number: None

PATIENT
  Age: 57 Year
  Sex: Female
  Weight: 92.5338 kg

DRUGS (1)
  1. SEROQUEL [Suspect]
     Indication: BIPOLAR DISORDER
     Dosage: 400 MGS. 1 X DAILY PO
     Route: 048
     Dates: start: 20100203, end: 20100409

REACTIONS (2)
  - CATARACT [None]
  - TREATMENT NONCOMPLIANCE [None]
